FAERS Safety Report 5639710-7 (Version None)
Quarter: 2008Q1

REPORT INFORMATION
  Report Type: 
  Country: None (occurrence: None)
  Receive Date: 20080222
  Receipt Date: 20080214
  Transmission Date: 20080703
  Serious: Yes (Hospitalization, Other)
  Sender: FDA-Public Use
  Company Number: JPI-P-003013

PATIENT
  Sex: Female

DRUGS (5)
  1. XYREM [Suspect]
     Indication: INSOMNIA
     Dosage: 10 GM (5 GM, 2 IN 1 D), ORAL; 6.5 GM (6.5 GM, 1 IN 1 D), ORAL; 5 GM (5 GM, 1 IN 1 D), ORAL
     Route: 048
     Dates: end: 20071101
  2. XYREM [Suspect]
     Indication: INSOMNIA
     Dosage: 10 GM (5 GM, 2 IN 1 D), ORAL; 6.5 GM (6.5 GM, 1 IN 1 D), ORAL; 5 GM (5 GM, 1 IN 1 D), ORAL
     Route: 048
     Dates: start: 20071101
  3. XYREM [Suspect]
     Indication: INSOMNIA
     Dosage: 10 GM (5 GM, 2 IN 1 D), ORAL; 6.5 GM (6.5 GM, 1 IN 1 D), ORAL; 5 GM (5 GM, 1 IN 1 D), ORAL
     Route: 048
     Dates: start: 20071101
  4. BUPROPION HYDROCHLORIDE [Concomitant]
  5. ANTI-HYPERTENSIVE (ANTIHYPERTENSIVES) [Concomitant]

REACTIONS (2)
  - CONVULSION [None]
  - GRAND MAL CONVULSION [None]
